FAERS Safety Report 7617229-1 (Version None)
Quarter: 2011Q3

REPORT INFORMATION
  Report Type: 
  Country: None (occurrence: None)
  Receive Date: 20110718
  Receipt Date: 20110706
  Transmission Date: 20111222
  Serious: Yes (Disabling)
  Sender: FDA-Public Use
  Company Number: KZ-JNJFOC-20110702182

PATIENT
  Age: 31 Year
  Sex: Male

DRUGS (2)
  1. SULFASALAZINE [Suspect]
     Indication: PRODUCT USED FOR UNKNOWN INDICATION
     Route: 048
     Dates: start: 20101101
  2. REMICADE [Suspect]
     Indication: SPINAL OSTEOARTHRITIS
     Route: 042
     Dates: start: 20110310

REACTIONS (1)
  - OSTEONECROSIS [None]
